FAERS Safety Report 7782030-5 (Version None)
Quarter: 2011Q3

REPORT INFORMATION
  Report Type: 
  Country: None (occurrence: None)
  Receive Date: 20110927
  Receipt Date: 20110914
  Transmission Date: 20111222
  Serious: Yes (Hospitalization, Other)
  Sender: FDA-Public Use
  Company Number: PHHY2011BR82691

PATIENT
  Sex: Male

DRUGS (3)
  1. PROPRANOLOL [Concomitant]
     Dosage: 50 MG IN MORNING, 50 MG AT NIGHT,UNK
  2. EXFORGE HCT [Suspect]
     Dosage: 160/12.5/5 MG
  3. ATENOLOL [Concomitant]
     Dosage: 50 MG, UNK

REACTIONS (2)
  - HERNIA [None]
  - HYPERTENSION [None]
